FAERS Safety Report 9248565 (Version 1)
Quarter: 2013Q1

REPORT INFORMATION
  Report Type: Spontaneous
  Country: US (occurrence: None)
  Receive Date: 20130305
  Receipt Date: 20130305
  Transmission Date: 20140127
  Serious: Yes (Other)
  Sender: FDA-Public Use
  Company Number: 163-21880-12092779

PATIENT
  Age: 51 Year
  Sex: Male

DRUGS (1)
  1. REVLIMID (LENALIDOMIDE) (25 MILLIGRAM, CAPSULES) [Suspect]
     Indication: PLASMA CELL MYELOMA
     Route: 048
     Dates: start: 20120816, end: 20120906

REACTIONS (5)
  - Abdominal discomfort [None]
  - Abdominal pain [None]
  - Decreased appetite [None]
  - Blood pressure increased [None]
  - Heart rate increased [None]
